FAERS Safety Report 22219403 (Version 1)
Quarter: 2023Q2

REPORT INFORMATION
  Report Type: Spontaneous
  Country: US (occurrence: None)
  Receive Date: 20230416
  Receipt Date: 20230416
  Transmission Date: 20230722
  Serious: Yes (Other)
  Sender: FDA-Public Use
  Company Number: None

PATIENT
  Age: 68 Year
  Sex: Female
  Weight: 99.9 kg

DRUGS (2)
  1. CRESTOR [Suspect]
     Active Substance: ROSUVASTATIN CALCIUM
     Indication: Hyperlipidaemia
     Dosage: FREQUENCY : DAILY;?
     Route: 048
     Dates: start: 20220928, end: 20230412
  2. CRESTOR [Concomitant]
     Active Substance: ROSUVASTATIN CALCIUM
     Dates: start: 20220928, end: 20230412

REACTIONS (6)
  - Hepatic enzyme increased [None]
  - Condition aggravated [None]
  - Abdominal pain upper [None]
  - Hyperhidrosis [None]
  - Nausea [None]
  - Serum ferritin increased [None]

NARRATIVE: CASE EVENT DATE: 20230321
